FAERS Safety Report 17641449 (Version 1)
Quarter: 2020Q2

REPORT INFORMATION
  Report Type: Report from Study
  Country: None (occurrence: US)
  Receive Date: 20200407
  Receipt Date: 20200407
  Transmission Date: 20200713
  Serious: Yes (Hospitalization)
  Sender: FDA-Public Use
  Company Number: US-BIOVITRUM-2020US1586

PATIENT
  Sex: Female

DRUGS (1)
  1. KINERET [Suspect]
     Active Substance: ANAKINRA
     Indication: HEPATIC FAILURE
     Route: 058

REACTIONS (3)
  - Hepatic failure [Not Recovered/Not Resolved]
  - Abdominal pain [Recovered/Resolved]
  - Liver function test abnormal [Recovering/Resolving]
